FAERS Safety Report 18472725 (Version 3)
Quarter: 2021Q1

REPORT INFORMATION
  Report Type: Spontaneous
  Country: US (occurrence: US)
  Receive Date: 20201106
  Receipt Date: 20210220
  Transmission Date: 20210419
  Serious: No
  Sender: FDA-Public Use
  Company Number: US-TAKEDA-2020TUS047743

PATIENT
  Sex: Female

DRUGS (2)
  1. ICLUSIG [Suspect]
     Active Substance: PONATINIB
     Indication: GENITAL NEOPLASM MALIGNANT FEMALE
  2. ICLUSIG [Suspect]
     Active Substance: PONATINIB
     Indication: VULVAL CANCER
     Dosage: 45 MILLIGRAM, QD
     Route: 065

REACTIONS (3)
  - Dry skin [Not Recovered/Not Resolved]
  - Off label use [Unknown]
  - Product dose omission issue [Unknown]
